FAERS Safety Report 14227779 (Version 3)
Quarter: 2018Q1

REPORT INFORMATION
  Report Type: Spontaneous
  Country: JP (occurrence: JP)
  Receive Date: 20171127
  Receipt Date: 20180111
  Transmission Date: 20180508
  Serious: Yes (Life-Threatening, Hospitalization, Other)
  Sender: FDA-Public Use
  Company Number: JP-VALIDUS PHARMACEUTICALS LLC-JP-2017VAL001578

PATIENT
  Age: 70 Year
  Sex: Male

DRUGS (2)
  1. FUROSEMIDE. [Suspect]
     Active Substance: FUROSEMIDE
     Indication: CARDIAC FAILURE
     Dosage: 20 MG, QD
     Route: 065
  2. FUROSEMIDE. [Suspect]
     Active Substance: FUROSEMIDE
     Indication: FLUID OVERLOAD

REACTIONS (9)
  - Malaise [Recovered/Resolved]
  - Shock [Unknown]
  - Atrial fibrillation [Unknown]
  - Condition aggravated [Unknown]
  - Vitamin B1 decreased [Unknown]
  - Condition aggravated [Recovered/Resolved]
  - Therapeutic response decreased [Unknown]
  - Cardiac tamponade [Unknown]
  - Blood pressure systolic decreased [Recovered/Resolved]
